FAERS Safety Report 21252840 (Version 3)
Quarter: 2022Q4

REPORT INFORMATION
  Report Type: Spontaneous
  Country: JP (occurrence: JP)
  Receive Date: 20220825
  Receipt Date: 20221207
  Transmission Date: 20230113
  Serious: Yes (Hospitalization, Other)
  Sender: FDA-Public Use
  Company Number: JP-TAKEDA-2022TJP070556

PATIENT
  Age: 78 Year
  Sex: Male
  Weight: 56.2 kg

DRUGS (6)
  1. CABOMETYX [Suspect]
     Active Substance: CABOZANTINIB S-MALATE
     Indication: Metastatic renal cell carcinoma
     Dosage: 40 MG, QD
     Route: 048
     Dates: start: 20220708, end: 20220722
  2. FEBUXOSTAT [Concomitant]
     Active Substance: FEBUXOSTAT
     Dosage: 20 MG, QD
     Route: 048
  3. CLARITIN [Concomitant]
     Active Substance: LORATADINE
     Dosage: 10 MG, QD
     Route: 048
  4. BIO-THREE [Concomitant]
     Active Substance: HERBALS
     Dosage: 1 G, TID
     Route: 048
  5. BELSOMRA [Concomitant]
     Active Substance: SUVOREXANT
     Dosage: 15 MG, QD
     Route: 048
  6. Azunol [Concomitant]
     Dosage: UNK
     Route: 065
     Dates: start: 20220708, end: 20220722

REACTIONS (6)
  - Cancer fatigue [Unknown]
  - Decreased appetite [Recovered/Resolved]
  - Metastatic renal cell carcinoma [Unknown]
  - Disease progression [Unknown]
  - Fall [Recovering/Resolving]
  - Fracture [Unknown]

NARRATIVE: CASE EVENT DATE: 20220722
